FAERS Safety Report 16065025 (Version 3)
Quarter: 2019Q2

REPORT INFORMATION
  Report Type: Spontaneous
  Country: JP (occurrence: JP)
  Receive Date: 20190313
  Receipt Date: 20190516
  Transmission Date: 20190711
  Serious: Yes (Life-Threatening, Hospitalization, Other)
  Sender: FDA-Public Use
  Company Number: JP-BRISTOL-MYERS SQUIBB COMPANY-BMS-2019-024730

PATIENT
  Age: 78 Year
  Sex: Female
  Weight: 43 kg

DRUGS (5)
  1. EVISTA [Concomitant]
     Active Substance: RALOXIFENE HYDROCHLORIDE
     Indication: OSTEOPOROSIS
     Dosage: 60 MG, EVERYDAY
     Route: 048
     Dates: end: 201808
  2. DAIKENCHUTO [Concomitant]
     Active Substance: HERBALS
     Indication: INTESTINAL OBSTRUCTION
     Dosage: 5 G, Q8H
     Route: 048
     Dates: end: 20180820
  3. OPDIVO [Suspect]
     Active Substance: NIVOLUMAB
     Indication: MALIGNANT MELANOMA
     Dosage: 110 MG, Q2W
     Route: 041
     Dates: start: 20180227, end: 20180717
  4. EDIROL [Concomitant]
     Active Substance: ELDECALCITOL
     Indication: OSTEOPOROSIS
     Dosage: 0.75 UG, EVERYDAY
     Route: 048
     Dates: end: 20180820
  5. FAMOTIDINE. [Concomitant]
     Active Substance: FAMOTIDINE
     Indication: GASTRITIS
     Dosage: 10 MG, Q12H
     Route: 048
     Dates: end: 20180820

REACTIONS (1)
  - Adrenal insufficiency [Recovered/Resolved]

NARRATIVE: CASE EVENT DATE: 20180731
